FAERS Safety Report 4500177-3 (Version None)
Quarter: 2004Q3

REPORT INFORMATION
  Report Type: 
  Country: None (occurrence: None)
  Receive Date: 20040927
  Receipt Date: 20040715
  Transmission Date: 20050211
  Serious: No
  Sender: FDA-Public Use
  Company Number: USA040772745

PATIENT
  Age: 13 Year
  Sex: Male
  Weight: 59 kg

DRUGS (5)
  1. STRATTERA [Suspect]
     Dosage: 75 MG DAY
  2. LITHIUM [Concomitant]
  3. SEROQUEL [Concomitant]
  4. TRILEPTAL [Concomitant]
  5. CLONIDINE [Concomitant]

REACTIONS (3)
  - AGITATION [None]
  - HYPERHIDROSIS [None]
  - TACHYCARDIA [None]
